FAERS Safety Report 16811850 (Version 1)
Quarter: 2019Q3

REPORT INFORMATION
  Report Type: Spontaneous
  Country: IR (occurrence: IR)
  Receive Date: 20190916
  Receipt Date: 20190916
  Transmission Date: 20191005
  Serious: Yes (Hospitalization, Other)
  Sender: FDA-Public Use
  Company Number: IR-AMNEAL PHARMACEUTICALS-2019-AMRX-01868

PATIENT
  Age: 32 Year
  Sex: Male

DRUGS (2)
  1. SILDENAFIL. [Suspect]
     Active Substance: SILDENAFIL
     Indication: PREMATURE EJACULATION
     Dosage: UNK
     Route: 065
  2. TRAMADOL HYDROCHLORIDE. [Suspect]
     Active Substance: TRAMADOL HYDROCHLORIDE
     Indication: PREMATURE EJACULATION
     Dosage: UNK
     Route: 065

REACTIONS (3)
  - Joint dislocation [Unknown]
  - Generalised tonic-clonic seizure [Unknown]
  - Intentional product misuse [Unknown]
